FAERS Safety Report 4559718-2 (Version None)
Quarter: 2005Q1

REPORT INFORMATION
  Report Type: 
  Country: None (occurrence: None)
  Receive Date: 20050107
  Receipt Date: 20041129
  Transmission Date: 20050727
  Serious: Yes (Hospitalization)
  Sender: FDA-Public Use
  Company Number: HQWYE716501DEC04

PATIENT
  Age: 78 Year
  Sex: Male
  Weight: 127.12 kg

DRUGS (1)
  1. CORDARONE [Suspect]
     Indication: VENTRICULAR TACHYCARDIA
     Dosage: 200 MG 2X PER 1 DAY,
     Dates: start: 20040401, end: 20041001

REACTIONS (1)
  - LUNG INFILTRATION [None]
